FAERS Safety Report 7392150-5 (Version None)
Quarter: 2011Q2

REPORT INFORMATION
  Report Type: 
  Country: None (occurrence: None)
  Receive Date: 20110404
  Receipt Date: 20110328
  Transmission Date: 20111010
  Serious: Yes (Hospitalization)
  Sender: FDA-Public Use
  Company Number: A0920303A

PATIENT
  Age: 64 Year
  Sex: Male

DRUGS (11)
  1. ADVAIR DISKUS 100/50 [Suspect]
     Indication: ASTHMA
     Dosage: 1PUFF TWICE PER DAY
     Route: 055
     Dates: start: 20010401
  2. CAPTOPRIL [Concomitant]
  3. ASPIRIN [Concomitant]
  4. INSULIN [Concomitant]
  5. VITAMIN B6 [Concomitant]
  6. VITAMIN E [Concomitant]
  7. FISH OIL [Concomitant]
  8. ASCORBIC ACID [Concomitant]
  9. METOCLOPRAMIDE [Concomitant]
  10. VITAMIN D [Concomitant]
  11. OMEPRAZOLE [Concomitant]

REACTIONS (8)
  - CATARACT [None]
  - DRUG INEFFECTIVE [None]
  - WHEEZING [None]
  - DEHYDRATION [None]
  - COUGH [None]
  - BRONCHITIS [None]
  - DIZZINESS [None]
  - LOSS OF CONSCIOUSNESS [None]
